FAERS Safety Report 17532990 (Version 1)
Quarter: 2020Q1

REPORT INFORMATION
  Report Type: Other
  Country: GB (occurrence: GB)
  Receive Date: 20200312
  Receipt Date: 20200312
  Transmission Date: 20200409
  Serious: Yes (Disabling)
  Sender: FDA-Public Use
  Company Number: GB-GLENMARK PHARMACEUTICALS-2020GMK046578

PATIENT

DRUGS (5)
  1. GABAPENTIN. [Suspect]
     Active Substance: GABAPENTIN
     Indication: PRODUCT USED FOR UNKNOWN INDICATION
     Dosage: UNK
     Route: 048
     Dates: start: 20200115, end: 20200115
  2. PREGABALIN. [Suspect]
     Active Substance: PREGABALIN
     Indication: PRODUCT USED FOR UNKNOWN INDICATION
     Dosage: 25 MG, UNK
     Route: 065
     Dates: start: 20200115
  3. LEVOTHYROXINE. [Concomitant]
     Active Substance: LEVOTHYROXINE
     Indication: PRODUCT USED FOR UNKNOWN INDICATION
     Dosage: 1 DF, OD (EACH MORNING AT LEAST 30 MIN BEFORE BREAKFAST, CAFFEINE DRINKS OR OTHER MEDICATION)
     Route: 065
     Dates: start: 20180817, end: 20200114
  4. DIHYDROCODEINE [Concomitant]
     Active Substance: DIHYDROCODEINE
     Indication: PAIN
     Dosage: ONE TO TWO TO BE TAKEN AT NIGHT; PRN ((AS NECESSARY))
     Route: 065
     Dates: start: 20180205, end: 20200114
  5. FLUOXETINE [Concomitant]
     Active Substance: FLUOXETINE HYDROCHLORIDE
     Indication: PRODUCT USED FOR UNKNOWN INDICATION
     Dosage: 1 DF, OD
     Route: 065
     Dates: start: 20190703

REACTIONS (1)
  - Palpitations [Recovered/Resolved]

NARRATIVE: CASE EVENT DATE: 20200115
